FAERS Safety Report 23493318 (Version 1)
Quarter: 2024Q1

REPORT INFORMATION
  Report Type: Spontaneous
  Country: US (occurrence: None)
  Receive Date: 20240206
  Receipt Date: 20240206
  Transmission Date: 20240410
  Serious: Yes (Hospitalization)
  Sender: FDA-Public Use
  Company Number: None

PATIENT
  Age: 6 Year
  Sex: Male
  Weight: 21.2 kg

DRUGS (8)
  1. ASPARLAS [Suspect]
     Active Substance: CALASPARGASE PEGOL-MKNL
     Dosage: FREQUENCY : ONCE;?
     Route: 042
     Dates: start: 20230117, end: 20230302
  2. DOCUSATE [Concomitant]
     Active Substance: DOCUSATE
  3. FAMOTIDINE [Concomitant]
     Active Substance: FAMOTIDINE
  4. MERCAPTOPURINE [Concomitant]
     Active Substance: MERCAPTOPURINE
  5. ONDANSETRON [Concomitant]
     Active Substance: ONDANSETRON
  6. BACTRIM [Concomitant]
     Active Substance: SULFAMETHOXAZOLE\TRIMETHOPRIM
  7. METHOTREXATE [Concomitant]
     Active Substance: METHOTREXATE
  8. VINCRISTINE [Concomitant]
     Active Substance: VINCRISTINE

REACTIONS (3)
  - Vomiting [None]
  - Anaphylactic reaction [None]
  - Infusion related reaction [None]

NARRATIVE: CASE EVENT DATE: 20230302
